FAERS Safety Report 22597725 (Version 1)
Quarter: 2023Q2

REPORT INFORMATION
  Report Type: Spontaneous
  Country: US (occurrence: US)
  Receive Date: 20230614
  Receipt Date: 20230614
  Transmission Date: 20230722
  Serious: Yes (Hospitalization, Other)
  Sender: FDA-Public Use
  Company Number: US-MLMSERVICE-20230530-4309768-1

PATIENT
  Age: 78 Year
  Sex: Male

DRUGS (7)
  1. OLANZAPINE [Suspect]
     Active Substance: OLANZAPINE
     Indication: Schizophrenia
     Dosage: 20 MILLIGRAM, ONCE A DAY
     Route: 065
     Dates: start: 2002
  2. OLANZAPINE [Suspect]
     Active Substance: OLANZAPINE
     Dosage: 15 MILLIGRAM, ONCE A DAY
     Route: 030
     Dates: end: 2022
  3. OLANZAPINE [Suspect]
     Active Substance: OLANZAPINE
     Dosage: 15 MILLIGRAM, ONCE A DAY
     Route: 065
     Dates: end: 2022
  4. OLANZAPINE [Suspect]
     Active Substance: OLANZAPINE
     Dosage: 15 MILLIGRAM, ONCE A DAY
     Route: 048
     Dates: end: 2022
  5. OLANZAPINE [Suspect]
     Active Substance: OLANZAPINE
     Dosage: 2.5 MILLIGRAM, UNK
     Route: 065
     Dates: end: 2022
  6. VALPROIC ACID [Concomitant]
     Active Substance: VALPROIC ACID
     Indication: Schizophrenia
     Dosage: UNK
     Route: 065
     Dates: start: 2015
  7. MEROPENEM [Concomitant]
     Active Substance: MEROPENEM
     Indication: Prostatic abscess
     Dosage: UNK
     Route: 065
     Dates: start: 2022

REACTIONS (3)
  - Exfoliative rash [Recovered/Resolved]
  - Rash morbilliform [Recovered/Resolved]
  - Agranulocytosis [Recovered/Resolved]
